APPROVED DRUG PRODUCT: PROPOXYPHENE COMPOUND-65
Active Ingredient: ASPIRIN; CAFFEINE; PROPOXYPHENE HYDROCHLORIDE
Strength: 389MG;32.4MG;65MG
Dosage Form/Route: CAPSULE;ORAL
Application: A083101 | Product #002
Applicant: SANDOZ INC
Approved: Jun 24, 1985 | RLD: No | RS: No | Type: DISCN